FAERS Safety Report 10043696 (Version 2)
Quarter: 2014Q2

REPORT INFORMATION
  Report Type: Spontaneous
  Country: SK (occurrence: SK)
  Receive Date: 20140328
  Receipt Date: 20140414
  Transmission Date: 20141212
  Serious: Yes (Other)
  Sender: FDA-Public Use
  Company Number: SK-ROCHE-1369780

PATIENT
  Age: 75 Year
  Sex: Male
  Weight: 82 kg

DRUGS (6)
  1. MABTHERA [Suspect]
     Indication: CHRONIC LYMPHOCYTIC LEUKAEMIA
     Route: 065
     Dates: start: 20140320, end: 20140320
  2. MILURIT [Concomitant]
  3. VASOCARDIN [Concomitant]
  4. STADAMET [Concomitant]
  5. ANOPYRIN [Concomitant]
  6. NOLPAZA [Concomitant]

REACTIONS (2)
  - Cyanosis [Recovered/Resolved]
  - Tremor [Recovered/Resolved]
